FAERS Safety Report 7639572-2 (Version None)
Quarter: 2011Q3

REPORT INFORMATION
  Report Type: 
  Country: None (occurrence: None)
  Receive Date: 20110722
  Receipt Date: 20110708
  Transmission Date: 20111222
  Serious: Yes (Hospitalization)
  Sender: FDA-Public Use
  Company Number: 2011MA008001

PATIENT
  Age: 5 Year
  Sex: Male

DRUGS (1)
  1. FEVERALL [Suspect]
     Indication: INFLUENZA
     Dosage: 500 MG, Q6HR,
     Dates: start: 20070801, end: 20071201

REACTIONS (6)
  - EOSINOPHILIA [None]
  - PROTHROMBIN TIME PROLONGED [None]
  - HEPATITIS ACUTE [None]
  - PYREXIA [None]
  - VOMITING [None]
  - ARTHRALGIA [None]
